FAERS Safety Report 7060052-X (Version None)
Quarter: 2010Q4

REPORT INFORMATION
  Report Type: 
  Country: None (occurrence: None)
  Receive Date: 20101025
  Receipt Date: 20100813
  Transmission Date: 20110411
  Serious: Yes (Other)
  Sender: FDA-Public Use
  Company Number: US-BRISTOL-MYERS SQUIBB COMPANY-15191356

PATIENT
  Sex: Female

DRUGS (3)
  1. BUSPAR [Suspect]
     Dosage: BUSPAR TABLET.
  2. XANAX [Suspect]
  3. ZOLOFT [Suspect]

REACTIONS (4)
  - DRUG INEFFECTIVE [None]
  - FEELING ABNORMAL [None]
  - HYPERTENSION [None]
  - TACHYCARDIA [None]
